FAERS Safety Report 25509222 (Version 1)
Quarter: 2025Q3

REPORT INFORMATION
  Report Type: Spontaneous
  Country: US (occurrence: None)
  Receive Date: 20250702
  Receipt Date: 20250702
  Transmission Date: 20251021
  Serious: Yes (Hospitalization)
  Sender: FDA-CTU
  Company Number: None

PATIENT
  Age: 36 Year
  Sex: Female
  Weight: 63.5 kg

DRUGS (1)
  1. OLANZAPINE [Suspect]
     Active Substance: OLANZAPINE
     Indication: Psychiatric care
     Dosage: FREQUENCY : DAILY;?
     Route: 048

REACTIONS (2)
  - Headache [None]
  - Dysmorphism [None]

NARRATIVE: CASE EVENT DATE: 20241101
